FAERS Safety Report 9492466 (Version 1)
Quarter: 2013Q3

REPORT INFORMATION
  Report Type: Spontaneous
  Country: US (occurrence: US)
  Receive Date: 20130830
  Receipt Date: 20130830
  Transmission Date: 20140515
  Serious: No
  Sender: FDA-Public Use
  Company Number: US-009507513-1308USA013644

PATIENT
  Sex: 0

DRUGS (1)
  1. ISENTRESS [Suspect]
     Dosage: UNK
     Route: 048
     Dates: start: 2012

REACTIONS (3)
  - Hypotension [Unknown]
  - Blood HIV RNA below assay limit [Unknown]
  - Dizziness [Unknown]
